FAERS Safety Report 8134320-4 (Version None)
Quarter: 2012Q1

REPORT INFORMATION
  Report Type: 
  Country: None (occurrence: None)
  Receive Date: 20120209
  Receipt Date: 20120125
  Transmission Date: 20120608
  Serious: Yes (Hospitalization, Other)
  Sender: FDA-Public Use
  Company Number: JPI-P-014377

PATIENT

DRUGS (10)
  1. TOPIRAMATE [Concomitant]
  2. GABAPENTIN [Concomitant]
  3. AMPHETAMINE DEXTROAMPHETAMINE MIXED SALTS [Concomitant]
  4. XYREM [Suspect]
     Indication: CATAPLEXY
     Dosage: 6 GM (3 GM, 2 IN 1 D), ORAL; 8 GM (4 GM, 2 IN 1 D), ORAL;
     Route: 048
     Dates: start: 20110218, end: 20110308
  5. DULOXETIME HYDROCHLORIDE [Concomitant]
  6. ROPINIROLE [Concomitant]
  7. XYREM [Suspect]
     Dosage: 8 GM (4 GM, 2 IN 1 D), ORAL
     Route: 048
     Dates: start: 20110309, end: 20110509
  8. BUPROPION HCL [Concomitant]
  9. MELOXICAM [Concomitant]
  10. ESTROGEN [Concomitant]

REACTIONS (13)
  - PNEUMONIA [None]
  - CEREBROVASCULAR ACCIDENT [None]
  - TREMOR [None]
  - NO THERAPEUTIC RESPONSE [None]
  - STRESS [None]
  - VISUAL ACUITY REDUCED [None]
  - BACK PAIN [None]
  - NERVOUSNESS [None]
  - DECREASED APPETITE [None]
  - WEIGHT DECREASED [None]
  - POLLAKIURIA [None]
  - MEMORY IMPAIRMENT [None]
  - DIVORCED [None]
